FAERS Safety Report 6988331-2 (Version None)
Quarter: 2010Q3

REPORT INFORMATION
  Report Type: 
  Country: None (occurrence: None)
  Receive Date: 20100916
  Receipt Date: 20100913
  Transmission Date: 20110219
  Serious: Yes (Hospitalization, Other)
  Sender: FDA-Public Use
  Company Number: US-BAYER-201019930BCC

PATIENT
  Age: 67 Year
  Sex: Female
  Weight: 52 kg

DRUGS (5)
  1. ASPIRIN [Suspect]
     Indication: PRODUCT USED FOR UNKNOWN INDICATION
     Route: 048
     Dates: end: 20030101
  2. PLAVIX [Suspect]
     Indication: POOR PERIPHERAL CIRCULATION
     Route: 048
     Dates: start: 20020101
  3. UNSPECIFIC PAIN MEDICATION [Concomitant]
     Route: 065
  4. UNSPECIFIC SLEEPING PILL [Concomitant]
     Route: 065
  5. AVAPRO [Concomitant]
     Route: 065

REACTIONS (5)
  - ANAEMIA [None]
  - DIVERTICULITIS [None]
  - LYMPHOMA [None]
  - RECTAL HAEMORRHAGE [None]
  - WEIGHT DECREASED [None]
